FAERS Safety Report 24039555 (Version 3)
Quarter: 2024Q3

REPORT INFORMATION
  Report Type: Spontaneous
  Country: SK (occurrence: SK)
  Receive Date: 20240702
  Receipt Date: 20240723
  Transmission Date: 20241016
  Serious: Yes (Other)
  Sender: ASTELLAS
  Company Number: SK-CZ26206285-Heaton20240416a

PATIENT
  Age: 33 Year
  Sex: Female

DRUGS (2)
  1. TACROLIMUS [Suspect]
     Active Substance: TACROLIMUS
     Indication: Immunosuppression
     Dosage: UNK UNK, UNKNOWN FREQ.
     Route: 065
  2. RITUXIMAB [Concomitant]
     Active Substance: RITUXIMAB
     Indication: Immunosuppression
     Dosage: UNK UNK, UNKNOWN FREQ.
     Route: 065

REACTIONS (9)
  - Renal tubular atrophy [Recovering/Resolving]
  - Kidney fibrosis [Recovering/Resolving]
  - Dyspepsia [Recovering/Resolving]
  - Diarrhoea [Recovering/Resolving]
  - Hypotension [Recovering/Resolving]
  - Dehydration [Recovering/Resolving]
  - Inflammation [Recovering/Resolving]
  - Graft complication [Recovering/Resolving]
  - Transplant dysfunction [Recovering/Resolving]
